FAERS Safety Report 14745858 (Version 2)
Quarter: 2018Q2

REPORT INFORMATION
  Report Type: Spontaneous
  Country: JP (occurrence: JP)
  Receive Date: 20180411
  Receipt Date: 20180427
  Transmission Date: 20180711
  Serious: Yes (Other)
  Sender: FDA-Public Use
  Company Number: PHJP2018JP008149

PATIENT

DRUGS (1)
  1. REVOLADE TAB [Suspect]
     Active Substance: ELTROMBOPAG
     Indication: IMMUNE THROMBOCYTOPENIC PURPURA
     Dosage: 12.5 MG, QOD
     Route: 048

REACTIONS (3)
  - Panniculitis [Recovered/Resolved]
  - Hepatic function abnormal [Unknown]
  - Fasciitis [Recovered/Resolved]

NARRATIVE: CASE EVENT DATE: 201709
